FAERS Safety Report 12582636 (Version 1)
Quarter: 2016Q3

REPORT INFORMATION
  Report Type: Report from Study
  Country: US (occurrence: US)
  Receive Date: 20160722
  Receipt Date: 20160722
  Transmission Date: 20161109
  Serious: Yes (Other)
  Sender: FDA-Public Use
  Company Number: US-ROCHE-1797202

PATIENT

DRUGS (15)
  1. FLUOROURACIL. [Suspect]
     Active Substance: FLUOROURACIL
     Indication: GASTROINTESTINAL CARCINOMA
     Route: 065
  2. IRINOTECAN [Suspect]
     Active Substance: IRINOTECAN
     Indication: GASTROINTESTINAL CARCINOMA
     Route: 065
  3. CISPLATIN. [Suspect]
     Active Substance: CISPLATIN
     Indication: GASTROINTESTINAL CARCINOMA
     Route: 065
  4. BEVACIZUMAB [Suspect]
     Active Substance: BEVACIZUMAB
     Indication: GASTROINTESTINAL CARCINOMA
     Route: 065
  5. IRINOTECAN [Suspect]
     Active Substance: IRINOTECAN
     Indication: GASTROINTESTINAL CARCINOMA
     Route: 065
  6. GEMCITABINE [Suspect]
     Active Substance: GEMCITABINE\GEMCITABINE HYDROCHLORIDE
     Indication: GASTROINTESTINAL CARCINOMA
     Route: 065
  7. EPIRUBICIN [Suspect]
     Active Substance: EPIRUBICIN
     Indication: GASTROINTESTINAL CARCINOMA
     Route: 065
  8. FLUOROURACIL. [Suspect]
     Active Substance: FLUOROURACIL
     Indication: GASTROINTESTINAL CARCINOMA
     Route: 065
  9. MITOMYCIN. [Suspect]
     Active Substance: MITOMYCIN
     Indication: GASTROINTESTINAL CARCINOMA
     Route: 065
  10. DOCETAXEL. [Suspect]
     Active Substance: DOCETAXEL
     Indication: GASTROINTESTINAL CARCINOMA
     Route: 065
  11. SORAFENIB [Suspect]
     Active Substance: SORAFENIB
     Indication: GASTROINTESTINAL CARCINOMA
     Route: 065
  12. CAPECITABINE. [Suspect]
     Active Substance: CAPECITABINE
     Indication: GASTROINTESTINAL CARCINOMA
     Route: 065
  13. NAB-PACLITAXEL [Suspect]
     Active Substance: PACLITAXEL
     Indication: GASTROINTESTINAL CARCINOMA
     Route: 065
  14. CARBOPLATIN. [Suspect]
     Active Substance: CARBOPLATIN
     Indication: GASTROINTESTINAL CARCINOMA
     Route: 065
  15. OXALIPLATIN. [Suspect]
     Active Substance: OXALIPLATIN
     Indication: GASTROINTESTINAL CARCINOMA
     Route: 065

REACTIONS (7)
  - Diarrhoea [Unknown]
  - Haematotoxicity [Unknown]
  - Neutropenia [Unknown]
  - Failure to thrive [Unknown]
  - Thrombocytopenia [Unknown]
  - Fatigue [Unknown]
  - Asthenia [Unknown]
